FAERS Safety Report 16051523 (Version 1)
Quarter: 2019Q1

REPORT INFORMATION
  Report Type: Spontaneous
  Country: GB (occurrence: GB)
  Receive Date: 20190308
  Receipt Date: 20190308
  Transmission Date: 20190418
  Serious: Yes (Disabling)
  Sender: FDA-Public Use
  Company Number: GB-BAUSCH-BL-2019-006985

PATIENT
  Age: 57 Year
  Sex: Male
  Weight: 78 kg

DRUGS (1)
  1. VENLAFAXINE [Suspect]
     Active Substance: VENLAFAXINE HYDROCHLORIDE
     Indication: DEPRESSION
     Route: 048
     Dates: start: 20170601, end: 20180401

REACTIONS (2)
  - Sexual dysfunction [Not Recovered/Not Resolved]
  - Loss of libido [Not Recovered/Not Resolved]
